FAERS Safety Report 8091614-9 (Version None)
Quarter: 2012Q1

REPORT INFORMATION
  Report Type: 
  Country: None (occurrence: None)
  Receive Date: 20120131
  Receipt Date: 20120124
  Transmission Date: 20120608
  Serious: No
  Sender: FDA-Public Use
  Company Number: US-PFIZER INC-2012020796

PATIENT
  Sex: Female

DRUGS (4)
  1. VICODIN [Suspect]
     Dosage: UNK
  2. CARVEDILOL [Suspect]
     Dosage: UNK
  3. AMLODIPINE BESYLATE [Suspect]
     Dosage: UNK
  4. TRACLEER [Suspect]
     Dosage: UNK

REACTIONS (4)
  - OEDEMA [None]
  - SWELLING [None]
  - DRUG HYPERSENSITIVITY [None]
  - HEADACHE [None]
